FAERS Safety Report 7525013-2 (Version None)
Quarter: 2011Q2

REPORT INFORMATION
  Report Type: 
  Country: None (occurrence: None)
  Receive Date: 20110602
  Receipt Date: 20110602
  Transmission Date: 20111010
  Serious: Yes (Hospitalization)
  Sender: FDA-Public Use
  Company Number: None

PATIENT
  Age: 65 Year
  Sex: Male
  Weight: 78 kg

DRUGS (2)
  1. DILTIAZEM [Suspect]
     Indication: HYPERTENSION
     Dosage: 300 MG EVERY DAY PO
     Route: 048
     Dates: start: 19990224, end: 20110531
  2. TERAZOSIN HCL [Concomitant]
     Indication: HYPERTENSION
     Dosage: 4 MG HS PO
     Route: 048
     Dates: start: 20101109, end: 20110531

REACTIONS (2)
  - SYNCOPE [None]
  - ORTHOSTATIC HYPOTENSION [None]
